FAERS Safety Report 24279591 (Version 1)
Quarter: 2024Q3

REPORT INFORMATION
  Report Type: Report from Study
  Country: US (occurrence: US)
  Receive Date: 20240904
  Receipt Date: 20240904
  Transmission Date: 20241017
  Serious: Yes (Other)
  Sender: JAZZ
  Company Number: US-JAZZ PHARMACEUTICALS-2024-US-013977

PATIENT
  Sex: Male

DRUGS (5)
  1. EPIDIOLEX [Suspect]
     Active Substance: CANNABIDIOL
     Indication: Lennox-Gastaut syndrome
     Dosage: UNK
     Route: 048
     Dates: start: 202404
  2. EPIDIOLEX [Suspect]
     Active Substance: CANNABIDIOL
     Dosage: 2 ML BY MOUTH IN THE AM AND 3 ML AT BEDTIME FOR 4 DAYS
     Route: 048
     Dates: start: 202404
  3. EPIDIOLEX [Suspect]
     Active Substance: CANNABIDIOL
     Dosage: 3 ML TWICE DAILY FOR 4 DAYS
     Route: 048
  4. EPIDIOLEX [Suspect]
     Active Substance: CANNABIDIOL
     Dosage: 3 ML IN THE AM AND 4 ML AT BEDTIME FOR 4 DAYS
     Route: 048
  5. EPIDIOLEX [Suspect]
     Active Substance: CANNABIDIOL
     Dosage: 4ML TWICE DAILY THEREAFTER
     Route: 048

REACTIONS (1)
  - Hallucination [Unknown]
